FAERS Safety Report 8495426-3 (Version None)
Quarter: 2012Q3

REPORT INFORMATION
  Report Type: 
  Country: None (occurrence: None)
  Receive Date: 20120709
  Receipt Date: 20120622
  Transmission Date: 20120928
  Serious: No
  Sender: FDA-Public Use
  Company Number: US-ASTRAZENECA-2012SE42399

PATIENT
  Sex: Male

DRUGS (1)
  1. CAPRELSA [Suspect]
     Indication: THYROID CANCER
     Route: 048

REACTIONS (4)
  - RASH MACULAR [None]
  - SKIN REACTION [None]
  - FACE OEDEMA [None]
  - CONJUNCTIVAL OEDEMA [None]
